FAERS Safety Report 7125190-1 (Version None)
Quarter: 2010Q4

REPORT INFORMATION
  Report Type: 
  Country: None (occurrence: None)
  Receive Date: 20101129
  Receipt Date: 20101117
  Transmission Date: 20110411
  Serious: Yes (Other)
  Sender: FDA-Public Use
  Company Number: PHHY2010SE77728

PATIENT
  Sex: Female

DRUGS (6)
  1. ZOMETA [Suspect]
     Indication: BREAST CANCER METASTATIC
     Dosage: UNK
     Dates: start: 20071201, end: 20100924
  2. INNOHEP [Concomitant]
  3. ZOLPIDEM TARTRATE [Concomitant]
  4. SOBRIL [Concomitant]
  5. OMEPRAZOLE [Concomitant]
  6. TENORMIN [Concomitant]

REACTIONS (3)
  - MUSCLE SPASMS [None]
  - ORAL DISCOMFORT [None]
  - TOOTH DISORDER [None]
